FAERS Safety Report 23515941 (Version 1)
Quarter: 2024Q1

REPORT INFORMATION
  Report Type: Spontaneous
  Country: US (occurrence: US)
  Receive Date: 20240213
  Receipt Date: 20240213
  Transmission Date: 20240410
  Serious: No
  Sender: FDA-Public Use
  Company Number: US-ACORDA-ACO_174649_2023

PATIENT
  Sex: Female

DRUGS (1)
  1. INBRIJA [Suspect]
     Active Substance: LEVODOPA
     Indication: Parkinson^s disease
     Dosage: 84 MILLIGRAM, PRN

REACTIONS (5)
  - Viral infection [Unknown]
  - Foreign body in throat [Unknown]
  - Product residue present [Unknown]
  - Sputum discoloured [Unknown]
  - Cough [Unknown]
